FAERS Safety Report 8117188-1 (Version None)
Quarter: 2012Q1

REPORT INFORMATION
  Report Type: 
  Country: None (occurrence: None)
  Receive Date: 20120206
  Receipt Date: 20120203
  Transmission Date: 20120608
  Serious: No
  Sender: FDA-Public Use
  Company Number: US-PFIZER INC-2012030470

PATIENT
  Sex: Female
  Weight: 88.88 kg

DRUGS (4)
  1. GLIPIZIDE [Concomitant]
     Indication: DIABETES MELLITUS
     Dosage: 10.10 MG, 2X/DAY
  2. IBUPROFEN (ADVIL) [Suspect]
     Indication: BACK PAIN
     Dosage: TWO CAPSULES OF 200MG ONCE
     Route: 048
     Dates: start: 20120202
  3. IBUPROFEN (ADVIL) [Suspect]
     Indication: RHINORRHOEA
     Dosage: SIX CAPSULES OF 200MG ONCE
     Route: 048
     Dates: start: 20120201, end: 20120201
  4. GLUCOPHAGE [Concomitant]
     Indication: DIABETES MELLITUS
     Dosage: 500 MG, 2X/DAY

REACTIONS (4)
  - VOMITING [None]
  - POOR QUALITY DRUG ADMINISTERED [None]
  - NAUSEA [None]
  - INCORRECT DOSE ADMINISTERED [None]
